FAERS Safety Report 9028294 (Version 1)
Quarter: 2013Q1

REPORT INFORMATION
  Report Type: Spontaneous
  Country: US (occurrence: US)
  Receive Date: 20130124
  Receipt Date: 20130124
  Transmission Date: 20140127
  Serious: No
  Sender: FDA-Public Use
  Company Number: US-PFIZER INC-2013022885

PATIENT
  Age: 70 Year
  Sex: Female
  Weight: 47.17 kg

DRUGS (4)
  1. OXALIPLATIN [Suspect]
     Indication: COLON CANCER
     Dosage: 122 MG IN 500ML D5W OVER 2 HOURS AND 30 MINUTES.
  2. OXALIPLATIN [Suspect]
     Dosage: 122 MG IN 500ML D5W OVER ONE HOUR.
  3. LEUCOVORIN [Suspect]
     Indication: COLON CANCER
     Dosage: 576 MG IN 500ML D5W OVER 2 HOURS AND 30 MINUTES.
  4. LEUCOVORIN [Suspect]
     Dosage: 576 MG IN 500ML D5W OVER ONE HOUR.

REACTIONS (7)
  - Throat tightness [Recovered/Resolved]
  - Sneezing [Recovered/Resolved]
  - Chest discomfort [Recovered/Resolved]
  - Pruritus [Recovering/Resolving]
  - Erythema [Unknown]
  - Rash generalised [Unknown]
  - Drug hypersensitivity [Unknown]
